FAERS Safety Report 25152047 (Version 1)
Quarter: 2025Q2

REPORT INFORMATION
  Report Type: Spontaneous
  Country: US (occurrence: US)
  Receive Date: 20250402
  Receipt Date: 20250402
  Transmission Date: 20250717
  Serious: No
  Sender: THEA PHARMA
  Company Number: US-THEA-2024002595

PATIENT
  Sex: Female

DRUGS (6)
  1. ZIOPTAN [Suspect]
     Active Substance: TAFLUPROST
     Indication: Glaucoma
     Dosage: IN LEFT EYE
     Route: 047
  2. ZIOPTAN [Suspect]
     Active Substance: TAFLUPROST
     Indication: Glaucoma
     Dosage: LEFT EYE AT HS
     Route: 047
     Dates: start: 2020
  3. ZIOPTAN [Suspect]
     Active Substance: TAFLUPROST
     Indication: Glaucoma
     Dosage: LEFT EYE
     Route: 047
     Dates: start: 2022
  4. ZIOPTAN [Suspect]
     Active Substance: TAFLUPROST
     Indication: Glaucoma
     Dosage: LEFT EYE
     Route: 047
  5. BOTOX [Suspect]
     Active Substance: ONABOTULINUMTOXINA
     Indication: Eyelid disorder
  6. BRIMONIDINE TARTRATE [Suspect]
     Active Substance: BRIMONIDINE TARTRATE
     Indication: Glaucoma
     Dates: start: 2024

REACTIONS (3)
  - Extra dose administered [Unknown]
  - Swelling of eyelid [Unknown]
  - Ocular hyperaemia [Unknown]
